FAERS Safety Report 15297757 (Version 1)
Quarter: 2018Q3

REPORT INFORMATION
  Report Type: Spontaneous
  Country: US (occurrence: US)
  Receive Date: 20180820
  Receipt Date: 20180820
  Transmission Date: 20181010
  Serious: No
  Sender: FDA-Public Use
  Company Number: US-SHIRE-US201831624

PATIENT
  Sex: Female
  Weight: 113.38 kg

DRUGS (7)
  1. SINGULAIR [Concomitant]
     Active Substance: MONTELUKAST SODIUM
     Indication: HYPERSENSITIVITY
  2. XIIDRA [Suspect]
     Active Substance: LIFITEGRAST
     Dosage: 7 GTT, 2X/DAY:BID
     Route: 047
     Dates: start: 201805, end: 201805
  3. XIIDRA [Suspect]
     Active Substance: LIFITEGRAST
     Indication: DRY EYE
     Dosage: 7 GTT, 2X/DAY:BID
     Route: 047
     Dates: start: 2017, end: 201803
  4. XIIDRA [Suspect]
     Active Substance: LIFITEGRAST
     Dosage: 1 GTT, 2X/DAY:BID
     Route: 047
     Dates: start: 20180809, end: 20180811
  5. LEVOTHYROXINE. [Concomitant]
     Active Substance: LEVOTHYROXINE
     Indication: THYROID DISORDER
  6. DULOXETINE. [Concomitant]
     Active Substance: DULOXETINE
     Indication: PRODUCT USED FOR UNKNOWN INDICATION
  7. ESOMEPRAZOLE [Concomitant]
     Active Substance: ESOMEPRAZOLE
     Indication: PRODUCT USED FOR UNKNOWN INDICATION

REACTIONS (12)
  - Instillation site foreign body sensation [Not Recovered/Not Resolved]
  - Instillation site pain [Recovered/Resolved]
  - Hypersensitivity [Unknown]
  - Ocular hyperaemia [Recovering/Resolving]
  - Instillation site swelling [Recovered/Resolved]
  - Dysgeusia [Recovered/Resolved]
  - Instillation site scab [Recovered/Resolved]
  - Instillation site haemorrhage [Unknown]
  - Instillation site discharge [Unknown]
  - Fear [Not Recovered/Not Resolved]
  - Off label use [Unknown]
  - Instillation site discolouration [Unknown]

NARRATIVE: CASE EVENT DATE: 2017
